FAERS Safety Report 4425858-1 (Version None)
Quarter: 2004Q3

REPORT INFORMATION
  Report Type: 
  Country: None (occurrence: None)
  Receive Date: 20040810
  Receipt Date: 20040730
  Transmission Date: 20050211
  Serious: Yes (Hospitalization)
  Sender: FDA-Public Use
  Company Number: 2004201007JP

PATIENT
  Age: 78 Year
  Sex: Female
  Weight: 42 kg

DRUGS (18)
  1. CABERGOLINE [Suspect]
     Indication: PARKINSON'S DISEASE
     Dosage: 0.25 MG/DAY, ORAL   SEE IMAGE
     Route: 048
     Dates: start: 20020204
  2. CABERGOLINE [Suspect]
     Indication: PARKINSON'S DISEASE
     Dosage: 0.25 MG/DAY, ORAL   SEE IMAGE
     Route: 048
     Dates: start: 20020212
  3. CABERGOLINE [Suspect]
     Indication: PARKINSON'S DISEASE
     Dosage: 0.25 MG/DAY, ORAL   SEE IMAGE
     Route: 048
     Dates: start: 20020219
  4. CABERGOLINE [Suspect]
     Indication: PARKINSON'S DISEASE
     Dosage: 0.25 MG/DAY, ORAL   SEE IMAGE
     Route: 048
     Dates: start: 20020226
  5. CABERGOLINE [Suspect]
     Indication: PARKINSON'S DISEASE
     Dosage: 0.25 MG/DAY, ORAL   SEE IMAGE
     Route: 048
     Dates: start: 20020312
  6. CABERGOLINE [Suspect]
     Indication: PARKINSON'S DISEASE
     Dosage: 0.25 MG/DAY, ORAL   SEE IMAGE
     Route: 048
     Dates: start: 20020319
  7. CABERGOLINE [Suspect]
     Indication: PARKINSON'S DISEASE
     Dosage: 0.25 MG/DAY, ORAL   SEE IMAGE
     Route: 048
     Dates: start: 20020326
  8. HALOPERIDOL [Suspect]
     Indication: HALLUCINATION
     Dosage: 1.75 MG, ORAL
     Route: 048
     Dates: start: 20020409
  9. AMITRIPTYLINE HCL [Suspect]
     Indication: DEPRESSION
     Dosage: 20-30 MG, ORAL
     Route: 048
     Dates: start: 20020204
  10. DEPAKENE [Suspect]
     Indication: MOROSE
     Dosage: 200-600 MG, ORAL
     Route: 048
     Dates: start: 20020419
  11. DEPAS(ETIZOLAM) [Concomitant]
  12. SELBEX(TEPRENONE) [Concomitant]
  13. GASMOTIN [Concomitant]
  14. GASTER [Concomitant]
  15. TINELAC(SENNOSIDE A+B) [Concomitant]
  16. HALCION [Concomitant]
  17. DIAZEPAM [Concomitant]
  18. GRAMALIL (TIAPRIDE HYDROCHLORIDE) [Concomitant]

REACTIONS (12)
  - CONDITION AGGRAVATED [None]
  - DELUSION [None]
  - DEPRESSION [None]
  - DRUG ERUPTION [None]
  - FALL [None]
  - FEMORAL NECK FRACTURE [None]
  - HALLUCINATION [None]
  - PARKINSON'S DISEASE [None]
  - PERSECUTORY DELUSION [None]
  - PORIOMANIA [None]
  - PRURITUS [None]
  - RESTLESSNESS [None]
